FAERS Safety Report 17236502 (Version 3)
Quarter: 2020Q2

REPORT INFORMATION
  Report Type: Report from Study
  Country: CO (occurrence: CO)
  Receive Date: 20200106
  Receipt Date: 20200407
  Transmission Date: 20200713
  Serious: Yes (Hospitalization)
  Sender: FDA-Public Use
  Company Number: NVSC2019CO078301

PATIENT
  Sex: Male
  Weight: 84 kg

DRUGS (2)
  1. VOTRIENT [Suspect]
     Active Substance: PAZOPANIB HYDROCHLORIDE
     Dosage: 800 MG, QD (2 OF 400 MG IN THE MORNING)
     Route: 065
     Dates: start: 20200206
  2. VOTRIENT [Suspect]
     Active Substance: PAZOPANIB HYDROCHLORIDE
     Indication: METASTATIC RENAL CELL CARCINOMA
     Dosage: 800 MG, QD (2 TABLTES OF 400 MG AT 7 AM)
     Route: 048
     Dates: start: 201908, end: 20191202

REACTIONS (10)
  - Pulmonary mass [Unknown]
  - Musculoskeletal pain [Unknown]
  - Metastatic renal cell carcinoma [Unknown]
  - Malignant neoplasm progression [Unknown]
  - Metastases to lung [Unknown]
  - Mass [Unknown]
  - Urticaria [Unknown]
  - Back pain [Unknown]
  - Metastases to bone [Unknown]
  - Drug ineffective [Unknown]
